FAERS Safety Report 5553796-X (Version None)
Quarter: 2007Q4

REPORT INFORMATION
  Report Type: 
  Country: None (occurrence: None)
  Receive Date: 20071213
  Receipt Date: 20071204
  Transmission Date: 20080405
  Serious: Yes (Hospitalization, Other)
  Sender: FDA-Public Use
  Company Number: US-ELI_LILLY_AND_COMPANY-US200712000741

PATIENT
  Sex: Male

DRUGS (2)
  1. HUMULIN R [Suspect]
     Dates: start: 20000101
  2. GLUCOTROL [Concomitant]
     Dosage: 5 MG, 2/D

REACTIONS (5)
  - BLOOD GLUCOSE INCREASED [None]
  - CHEST PAIN [None]
  - CHILLS [None]
  - CYSTITIS [None]
  - PROSTATE INFECTION [None]
